FAERS Safety Report 18394733 (Version 2)
Quarter: 2020Q4

REPORT INFORMATION
  Report Type: Report from Study
  Country: CO (occurrence: CO)
  Receive Date: 20201017
  Receipt Date: 20201024
  Transmission Date: 20210114
  Serious: Yes (Death, Hospitalization)
  Sender: FDA-Public Use
  Company Number: NVSC2020CO273719

PATIENT
  Age: 49 Year
  Sex: Female

DRUGS (1)
  1. KISQALI [Suspect]
     Active Substance: RIBOCICLIB
     Indication: HER2 NEGATIVE BREAST CANCER
     Dosage: UNK
     Route: 048

REACTIONS (5)
  - Abdominal pain upper [Unknown]
  - Drug intolerance [Unknown]
  - Death [Fatal]
  - Inflammation [Unknown]
  - Metastases to liver [Unknown]

NARRATIVE: CASE EVENT DATE: 20200916
